FAERS Safety Report 8430208-X (Version None)
Quarter: 2012Q2

REPORT INFORMATION
  Report Type: 
  Country: None (occurrence: None)
  Receive Date: 20120604
  Receipt Date: 20120530
  Transmission Date: 20120825
  Serious: Yes (Other)
  Sender: FDA-Public Use
  Company Number: USA/USA/12/0024516

PATIENT
  Age: 53 Year
  Sex: Male

DRUGS (5)
  1. DONEPEZIL HYDROCHLORIDE [Concomitant]
  2. FLUOXETINE [Suspect]
     Indication: DEPRESSION
     Dosage: 20 MG, 1 IN 1 D
     Dates: start: 20041101, end: 20050101
  3. VALPROIC ACID [Concomitant]
  4. PHENOBARBITAL TAB [Concomitant]
  5. BUSPIRONE HCL [Concomitant]

REACTIONS (2)
  - APATHY [None]
  - INDIFFERENCE [None]
